FAERS Safety Report 4795324-2 (Version None)
Quarter: 2005Q4

REPORT INFORMATION
  Report Type: 
  Country: None (occurrence: None)
  Receive Date: 20051012
  Receipt Date: 20051006
  Transmission Date: 20060501
  Serious: Yes (Other)
  Sender: FDA-Public Use
  Company Number: BE-GLAXOSMITHKLINE-B0396553A

PATIENT

DRUGS (2)
  1. LAMOTRIGINE [Suspect]
     Indication: DRUG USE FOR UNKNOWN INDICATION
     Dosage: 100MG TWICE PER DAY
  2. PHENOBARBITAL TAB [Concomitant]

REACTIONS (2)
  - CLEFT LIP [None]
  - DRUG EXPOSURE DURING PREGNANCY [None]
